FAERS Safety Report 12099887 (Version 2)
Quarter: 2016Q1

REPORT INFORMATION
  Report Type: Spontaneous
  Country: CA (occurrence: CA)
  Receive Date: 20160222
  Receipt Date: 20160304
  Transmission Date: 20160526
  Serious: Yes (Other)
  Sender: FDA-Public Use
  Company Number: CA-PFIZER INC-2016101028

PATIENT
  Sex: Female

DRUGS (1)
  1. CHILDRENS ADVIL [Suspect]
     Active Substance: IBUPROFEN
     Dosage: UNK
     Dates: start: 201601, end: 201602

REACTIONS (6)
  - Product quality issue [Recovered/Resolved]
  - Poor quality drug administered [Recovered/Resolved]
  - Epistaxis [Recovered/Resolved]
  - Drug administration error [Recovered/Resolved]
  - Haematochezia [Recovered/Resolved]
  - Condition aggravated [Recovered/Resolved]

NARRATIVE: CASE EVENT DATE: 201601
